FAERS Safety Report 7508860-2 (Version None)
Quarter: 2011Q2

REPORT INFORMATION
  Report Type: 
  Country: None (occurrence: None)
  Receive Date: 20110527
  Receipt Date: 20110523
  Transmission Date: 20111010
  Serious: Yes (Death)
  Sender: FDA-Public Use
  Company Number: US-SANOFI-AVENTIS-2011SA032260

PATIENT
  Age: 64 Year
  Sex: Male

DRUGS (7)
  1. OXALIPLATIN [Suspect]
     Route: 042
     Dates: start: 20110504, end: 20110504
  2. FLUOROURACIL [Suspect]
     Indication: GASTRIC CANCER
     Route: 042
     Dates: start: 20110331, end: 20110401
  3. FLUOROURACIL [Suspect]
     Route: 042
     Dates: start: 20110503, end: 20110504
  4. OXALIPLATIN [Suspect]
     Indication: GASTRIC CANCER
     Route: 042
     Dates: start: 20110331, end: 20110331
  5. LEUCOVORIN CALCIUM [Suspect]
     Route: 042
     Dates: start: 20110503, end: 20110503
  6. INVESTIGATIONAL DRUG [Suspect]
     Indication: GASTRIC CANCER
     Route: 048
     Dates: start: 20110331, end: 20110506
  7. LEUCOVORIN CALCIUM [Suspect]
     Indication: GASTRIC CANCER
     Route: 042
     Dates: start: 20110331, end: 20110331

REACTIONS (1)
  - DEATH [None]
